FAERS Safety Report 24367203 (Version 1)
Quarter: 2024Q3

REPORT INFORMATION
  Report Type: Spontaneous
  Country: US (occurrence: US)
  Receive Date: 20240926
  Receipt Date: 20240926
  Transmission Date: 20241016
  Serious: Yes (Other)
  Sender: REGENERON
  Company Number: US-REGENERON PHARMACEUTICALS, INC.-2024-129064

PATIENT
  Age: 79 Year
  Sex: Female

DRUGS (5)
  1. EYLEA HD [Suspect]
     Active Substance: AFLIBERCEPT
     Indication: Neovascular age-related macular degeneration
     Dosage: UNK, Q8W, INTO LEFT EYE, FORMULATION: HD
     Route: 031
     Dates: start: 20231013, end: 20231013
  2. EYLEA HD [Suspect]
     Active Substance: AFLIBERCEPT
     Dosage: UNK, Q8W, INTO LEFT EYE, FORMULATION: HD
     Route: 031
     Dates: start: 20231127, end: 20231127
  3. EYLEA HD [Suspect]
     Active Substance: AFLIBERCEPT
     Dosage: UNK, Q8W, INTO LEFT EYE, FORMULATION: HD
     Route: 031
     Dates: start: 20240122, end: 20240122
  4. EYLEA HD [Suspect]
     Active Substance: AFLIBERCEPT
     Dosage: UNK, Q8W, INTO BOTH EYE, FORMULATION: HD
     Route: 031
     Dates: start: 20240415, end: 20240415
  5. EYLEA HD [Suspect]
     Active Substance: AFLIBERCEPT
     Dosage: UNK, Q8W, INTO BOTH EYE, FORMULATION: HD
     Route: 031
     Dates: start: 20240610, end: 20240610

REACTIONS (2)
  - Neovascular age-related macular degeneration [Unknown]
  - Visual acuity reduced [Unknown]

NARRATIVE: CASE EVENT DATE: 20240101
